FAERS Safety Report 10161945 (Version 1)
Quarter: 2014Q2

REPORT INFORMATION
  Report Type: Spontaneous
  Country: US (occurrence: None)
  Receive Date: 20140507
  Receipt Date: 20140507
  Transmission Date: 20141212
  Serious: Yes (Hospitalization, Other)
  Sender: FDA-Public Use
  Company Number: 2014-US-005175

PATIENT
  Age: 21 Year
  Sex: Male

DRUGS (6)
  1. XYREM [Suspect]
     Indication: PRODUCT USED FOR UNKNOWN INDICATION
     Route: 048
     Dates: start: 201106, end: 2011
  2. MULTIVITAMIN TABLET [Concomitant]
  3. VITAMIN C ORAL DRUG UNSPECIFIED FORM [Concomitant]
  4. BUPROPION TABLET [Concomitant]
  5. ESCITALOPRAM TABLETS USP 20 MG [Concomitant]
  6. MECLIZINE TABLET [Concomitant]

REACTIONS (2)
  - Thyroidectomy [None]
  - Papillary thyroid cancer [None]
